FAERS Safety Report 22045782 (Version 1)
Quarter: 2023Q1

REPORT INFORMATION
  Report Type: Spontaneous
  Country: US (occurrence: None)
  Receive Date: 20230227
  Receipt Date: 20230227
  Transmission Date: 20230418
  Serious: Yes (Hospitalization)
  Sender: FDA-Public Use
  Company Number: None

PATIENT
  Age: 84 Year
  Sex: Female

DRUGS (5)
  1. ZENPEP [Suspect]
     Active Substance: PANCRELIPASE AMYLASE\PANCRELIPASE LIPASE\PANCRELIPASE PROTEASE
     Indication: Pancreatic carcinoma
     Dosage: FREQUENCY : 3 TIMES A DAY;?
     Route: 048
     Dates: start: 20221019
  2. BRIMONIDINE OPHTH SOLN [Concomitant]
  3. PREDNISOLONE AC OPHTH SUSP [Concomitant]
  4. MULTIVITAMIN ADULTS 50+ TABLETS [Concomitant]
  5. LANTUS SOLOSTAR PEN INJ [Concomitant]

REACTIONS (1)
  - COVID-19 [None]
